FAERS Safety Report 4428675-1 (Version None)
Quarter: 2004Q3

REPORT INFORMATION
  Report Type: 
  Country: None (occurrence: None)
  Receive Date: 20040818
  Receipt Date: 20031013
  Transmission Date: 20050211
  Serious: No
  Sender: FDA-Public Use
  Company Number: US-BRISTOL-MYERS SQUIBB COMPANY-12409496

PATIENT
  Age: 69 Year
  Sex: Female
  Weight: 63 kg

DRUGS (3)
  1. TEQUIN [Suspect]
     Indication: BRONCHITIS
     Dosage: EXP. 10/20/04-DOSAGE DECREASED TO 200 MG ONCE DAILY
     Route: 048
     Dates: start: 20031010
  2. VITAMIN B COMPLEX CAP [Concomitant]
  3. MAALOX [Concomitant]

REACTIONS (2)
  - PRURITUS [None]
  - SOMNOLENCE [None]
